FAERS Safety Report 9421050 (Version 2)
Quarter: 2013Q4

REPORT INFORMATION
  Report Type: Spontaneous
  Country: US (occurrence: US)
  Receive Date: 20130725
  Receipt Date: 20131004
  Transmission Date: 20140711
  Serious: Yes (Other)
  Sender: FDA-Public Use
  Company Number: US-UCBSA-027739

PATIENT
  Sex: Female

DRUGS (2)
  1. CIMZIA [Suspect]
     Route: 058
     Dates: start: 20100622, end: 2011
  2. XELJANZ [Suspect]
     Route: 048
     Dates: start: 201303

REACTIONS (4)
  - Mycosis fungoides [Unknown]
  - Surgery [Unknown]
  - Oral herpes [Recovered/Resolved]
  - Rash [Unknown]
